FAERS Safety Report 17837015 (Version 2)
Quarter: 2021Q2

REPORT INFORMATION
  Report Type: Report from Study
  Country: US (occurrence: US)
  Receive Date: 20200529
  Receipt Date: 20210506
  Transmission Date: 20210717
  Serious: Yes (Hospitalization, Other)
  Sender: FDA-Public Use
  Company Number: US-BRISTOL-MYERS SQUIBB COMPANY-BMS-2020-040194

PATIENT
  Age: 64 Year
  Sex: Male
  Weight: 39.3 kg

DRUGS (24)
  1. IPILIMUMAB [Suspect]
     Active Substance: IPILIMUMAB
     Indication: PROSTATE CANCER
     Route: 065
  2. BIMATOPROST. [Concomitant]
     Active Substance: BIMATOPROST
     Indication: HYPERSENSITIVITY
     Dosage: 0.01 % 1 DROP TO BOTH EYES AT BEDTIME
     Route: 065
     Dates: start: 1980
  3. CALCIUM CARBONATE. [Concomitant]
     Active Substance: CALCIUM CARBONATE
     Indication: VITAMIN SUPPLEMENTATION
     Dosage: 1500 MG DAILY
     Route: 048
     Dates: start: 2018
  4. XALATAN [Concomitant]
     Active Substance: LATANOPROST
     Indication: PRODUCT USED FOR UNKNOWN INDICATION
     Dosage: OPHTHALMIC SOLUTION, ADMINISTER 1 DROP TO BOTH EYES AT BEDTIME
     Route: 061
  5. DECADRON [Concomitant]
     Active Substance: DEXAMETHASONE
     Indication: PRODUCT USED FOR UNKNOWN INDICATION
     Dosage: TAKE 1 TABLET BY MOUTH TWICE A DAY FOR 5 DAYS, THEN 1 TABLET BY MOUTH DAILY FOR 5 DAYS, THEN STOP.
     Route: 048
  6. PRILOSEC [Concomitant]
     Active Substance: OMEPRAZOLE MAGNESIUM
     Indication: PRODUCT USED FOR UNKNOWN INDICATION
     Dosage: 20 MG BY MOUTH EVERY MORNING
     Route: 048
  7. MIRALAX [Concomitant]
     Active Substance: POLYETHYLENE GLYCOL 3350
     Indication: PRODUCT USED FOR UNKNOWN INDICATION
     Dosage: 17 G PACKET STIR AND DISSOLVE ONE PACKET OF POWDER (17 G) IN ANY 4 TO 8 OUNCES OF BEVERAGE (COLD, HO
     Route: 048
  8. APALUTAMIDE [Suspect]
     Active Substance: APALUTAMIDE
     Indication: PROSTATE CANCER
     Dosage: 240 MILLIGRAM DAILY
     Route: 048
     Dates: start: 20180604, end: 20200518
  9. ALBUTEROL [SALBUTAMOL] [Concomitant]
     Active Substance: ALBUTEROL
     Indication: ASTHMA
     Dosage: 90 MCG/PUFF 1 PUFF PRN
     Route: 065
     Dates: start: 1970
  10. ASPIRIN [ACETYLSALICYLIC ACID] [Concomitant]
     Active Substance: ASPIRIN
     Indication: PRODUCT USED FOR UNKNOWN INDICATION
     Dosage: 325 MG DAILY
     Route: 048
     Dates: start: 20190507
  11. DENOSUMAB [Concomitant]
     Active Substance: DENOSUMAB
     Indication: PRODUCT USED FOR UNKNOWN INDICATION
     Dosage: 120 MG/L.7 ML INJECTION EVERY MONTH, INJECT 120 MG UNDER THE SKIN EVERY 3 (THREE) MONTHS.
     Route: 058
     Dates: start: 201806
  12. LEUPROLIDE [LEUPRORELIN] [Concomitant]
     Active Substance: LEUPROLIDE ACETATE
     Indication: PRODUCT USED FOR UNKNOWN INDICATION
     Dosage: INJECT 22.5 MG INTO THE SHOULDER, THIGH, OR BUTTOCKS EVERY 3 (THREE) MONTHS (LUPRON DEPOT).
     Route: 058
     Dates: start: 201607
  13. FEXOFENADINE [Concomitant]
     Active Substance: FEXOFENADINE HYDROCHLORIDE
     Indication: HYPERSENSITIVITY
     Dosage: TAKE 1 TABLET BY MOUTH DAILY
     Route: 048
     Dates: start: 2000
  14. ABIRATERONE. [Concomitant]
     Active Substance: ABIRATERONE ACETATE
     Indication: PRODUCT USED FOR UNKNOWN INDICATION
     Dosage: TAKE 4 TABLETS (1,000 MG) BY MOUTH DAILY
     Route: 048
  15. ALEVE [Concomitant]
     Active Substance: NAPROXEN SODIUM
     Indication: PRODUCT USED FOR UNKNOWN INDICATION
     Dosage: TAKE 220 MG BY MOUTH EVERY MORNING
     Route: 048
  16. CABAZITAXEL;CARBOPLATIN [Concomitant]
     Indication: PRODUCT USED FOR UNKNOWN INDICATION
     Dosage: X 10 (UNITS NOT SPECIFIED)
     Route: 065
  17. CHOLECALCIFEROL [Concomitant]
     Active Substance: CHOLECALCIFEROL
     Indication: SUPPLEMENTATION THERAPY
     Dosage: 1000 UNITS, DAILY
     Route: 048
     Dates: start: 2017
  18. CALTRATE D3 [Concomitant]
     Indication: PRODUCT USED FOR UNKNOWN INDICATION
     Dosage: 600 MG(1,500MG) ?800, TAKE 1 TABLET BY MOUTH TWICE DAILY.
     Route: 048
  19. ABIRATERONE ACETATE. [Suspect]
     Active Substance: ABIRATERONE ACETATE
     Indication: PROSTATE CANCER
     Dosage: 1000 MILLIGRAM DAILY
     Route: 048
     Dates: start: 20180604, end: 20200518
  20. PANTOPRAZOLE [Concomitant]
     Active Substance: PANTOPRAZOLE
     Indication: PRODUCT USED FOR UNKNOWN INDICATION
     Dosage: 40 MG EC DAILY
     Route: 048
     Dates: start: 20190514
  21. RHOPRESSA [Concomitant]
     Active Substance: NETARSUDIL MESYLATE
     Indication: GLAUCOMA
     Dosage: 0.02 % EYE DROPS 1 DROP IN TO LEFT EYE DAILY
     Route: 065
     Dates: start: 20190118
  22. TYLENOL [Concomitant]
     Active Substance: ACETAMINOPHEN
     Indication: PRODUCT USED FOR UNKNOWN INDICATION
     Dosage: 1,000 MG BY MOUTH AT BEDTIME
     Route: 048
  23. DELTASONE [Concomitant]
     Active Substance: PREDNISONE
     Indication: PRODUCT USED FOR UNKNOWN INDICATION
     Dosage: 5 MILLIGRAM, QD
     Route: 048
  24. SENOKOT [Concomitant]
     Active Substance: SENNOSIDES
     Indication: PRODUCT USED FOR UNKNOWN INDICATION
     Dosage: TAKE 2 TABLETS BY MOUTH TWICE DAILY
     Route: 048

REACTIONS (1)
  - Cauda equina syndrome [Not Recovered/Not Resolved]

NARRATIVE: CASE EVENT DATE: 20200518
